FAERS Safety Report 25661854 (Version 2)
Quarter: 2025Q3

REPORT INFORMATION
  Report Type: Spontaneous
  Country: EU (occurrence: EU)
  Receive Date: 20250809
  Receipt Date: 20250813
  Transmission Date: 20251020
  Serious: Yes (Hospitalization, Other)
  Sender: CELLTRION
  Company Number: EU-ABBVIE-6280303

PATIENT

DRUGS (8)
  1. ADALIMUMAB [Suspect]
     Active Substance: ADALIMUMAB
     Indication: Rheumatoid arthritis
     Route: 058
  2. ADALIMUMAB [Suspect]
     Active Substance: ADALIMUMAB
  3. RINVOQ [Suspect]
     Active Substance: UPADACITINIB
     Indication: Peripheral spondyloarthritis
     Route: 048
  4. RINVOQ [Suspect]
     Active Substance: UPADACITINIB
     Indication: Rheumatic disorder
     Route: 048
     Dates: start: 2025
  5. RINVOQ [Suspect]
     Active Substance: UPADACITINIB
     Route: 048
     Dates: start: 2021
  6. RINVOQ [Suspect]
     Active Substance: UPADACITINIB
     Route: 048
     Dates: end: 202407
  7. DICLOFENAC [Concomitant]
     Active Substance: DICLOFENAC
     Indication: Product used for unknown indication
  8. MESALAMINE [Concomitant]
     Active Substance: MESALAMINE
     Indication: Product used for unknown indication

REACTIONS (40)
  - Faecaloma [Unknown]
  - Large intestinal ulcer [Unknown]
  - Ileus [Recovering/Resolving]
  - Colitis [Recovered/Resolved]
  - Pain [Unknown]
  - Colitis [Unknown]
  - Intestinal ulcer [Unknown]
  - Stenosis [Unknown]
  - Anastomotic complication [Recovering/Resolving]
  - Gastrointestinal angiodysplasia [Unknown]
  - Mechanical ileus [Unknown]
  - Ulcer [Unknown]
  - Colon cancer [Unknown]
  - Complicated appendicitis [Unknown]
  - Abscess intestinal [Unknown]
  - Vomiting [Unknown]
  - Cellulitis [Unknown]
  - Cardiovascular disorder [Unknown]
  - Abdominal distension [Unknown]
  - Procedural pain [Unknown]
  - Weight decreased [Unknown]
  - Asthenia [Unknown]
  - Rheumatic disorder [Unknown]
  - C-reactive protein increased [Unknown]
  - Abnormal faeces [Unknown]
  - Thrombocytosis [Recovering/Resolving]
  - Muscular weakness [Unknown]
  - Fatigue [Recovering/Resolving]
  - Fatigue [Unknown]
  - Constipation [Unknown]
  - Pruritus [Unknown]
  - Leukocytosis [Unknown]
  - Impaired healing [Unknown]
  - Herpes zoster [Unknown]
  - Anaemia [Recovered/Resolved]
  - Abdominal pain lower [Unknown]
  - Abdominal pain [Recovered/Resolved]
  - Abdominal pain [Unknown]
  - Arthralgia [Recovering/Resolving]
  - Drug ineffective [Unknown]

NARRATIVE: CASE EVENT DATE: 20230101
